FAERS Safety Report 9444218 (Version 1)
Quarter: 2013Q3

REPORT INFORMATION
  Report Type: Spontaneous
  Country: US (occurrence: None)
  Receive Date: 20130806
  Receipt Date: 20130806
  Transmission Date: 20140515
  Serious: No
  Sender: FDA-Public Use
  Company Number: None

PATIENT
  Age: 79 Year
  Sex: Female
  Weight: 64.41 kg

DRUGS (2)
  1. LIALDA [Suspect]
     Indication: COLITIS ULCERATIVE
     Dosage: 1.2 GRAMS  1 X DAILY  ORAL
     Route: 048
     Dates: start: 20130603
  2. PRENIZONE [Concomitant]

REACTIONS (2)
  - Unevaluable event [None]
  - Haemorrhage [None]
